FAERS Safety Report 5115215-7 (Version None)
Quarter: 2006Q3

REPORT INFORMATION
  Report Type: 
  Country: None (occurrence: None)
  Receive Date: 20060926
  Receipt Date: 20060919
  Transmission Date: 20061208
  Serious: Yes (Hospitalization)
  Sender: FDA-Public Use
  Company Number: US-AVENTIS-200617929US

PATIENT
  Sex: Female
  Weight: 109.9 kg

DRUGS (8)
  1. LANTUS [Suspect]
     Indication: DIABETES MELLITUS
     Dates: start: 20030101
  2. LANTUS [Suspect]
  3. GLUCOPHAGE [Concomitant]
     Dosage: DOSE: UNK
  4. AVANDIA [Concomitant]
     Dosage: DOSE: UNK
  5. DIABETA [Concomitant]
     Dosage: DOSE: UNK
  6. NORVASC [Concomitant]
     Dosage: DOSE: UNK
  7. METOPROLOL [Concomitant]
     Dosage: DOSE: UNK
  8. LISINOPRIL [Concomitant]
     Dosage: DOSE: UNK

REACTIONS (4)
  - BLOOD GLUCOSE DECREASED [None]
  - CHOLELITHOTOMY [None]
  - WEIGHT DECREASED [None]
  - WEIGHT INCREASED [None]
